FAERS Safety Report 10501529 (Version 1)
Quarter: 2014Q4

REPORT INFORMATION
  Report Type: Spontaneous
  Country: US (occurrence: None)
  Receive Date: 20141006
  Receipt Date: 20141006
  Transmission Date: 20150528
  Serious: Yes (Hospitalization)
  Sender: FDA-Public Use
  Company Number: None

PATIENT
  Sex: Female

DRUGS (1)
  1. STIVARGA [Suspect]
     Active Substance: REGORAFENIB
     Indication: MALIGNANT ANORECTAL NEOPLASM
     Dosage: 160MG DAILY 3 WKS ON AND 1 WEEK OFF
     Route: 048
     Dates: start: 20140826

REACTIONS (4)
  - Pain [None]
  - Haemorrhage [None]
  - Nausea [None]
  - Vomiting [None]
